FAERS Safety Report 7545118-X (Version None)
Quarter: 2011Q2

REPORT INFORMATION
  Report Type: 
  Country: None (occurrence: None)
  Receive Date: 20110610
  Receipt Date: 20110610
  Transmission Date: 20111010
  Serious: Yes (Other)
  Sender: FDA-Public Use
  Company Number: None

PATIENT
  Sex: Female
  Weight: 54.4316 kg

DRUGS (1)
  1. ZYPREXA [Suspect]
     Dosage: 2 DAILY MORNING + NIGHT
     Dates: start: 20081001, end: 20081201

REACTIONS (3)
  - WEIGHT INCREASED [None]
  - DRUG INEFFECTIVE [None]
  - DEPRESSION [None]
